FAERS Safety Report 21942622 (Version 1)
Quarter: 2023Q1

REPORT INFORMATION
  Report Type: Report from Study
  Country: US (occurrence: US)
  Receive Date: 20230202
  Receipt Date: 20230202
  Transmission Date: 20230417
  Serious: No
  Sender: FDA-Public Use
  Company Number: US-EXELIXIS-CABO-22058321

PATIENT
  Sex: Male

DRUGS (2)
  1. CABOMETYX [Suspect]
     Active Substance: CABOZANTINIB S-MALATE
     Indication: Product used for unknown indication
     Dosage: 40 MG, QD
     Route: 048
     Dates: start: 20221110
  2. CABOMETYX [Suspect]
     Active Substance: CABOZANTINIB S-MALATE
     Dosage: 20 MG, QD
     Route: 048
     Dates: end: 202212

REACTIONS (28)
  - Myalgia [Recovering/Resolving]
  - Rhinorrhoea [Recovering/Resolving]
  - Hepatic steatosis [Unknown]
  - Hepatic cirrhosis [Unknown]
  - Oesophageal food impaction [Unknown]
  - Sinus disorder [Recovering/Resolving]
  - Hyperkeratosis [Recovering/Resolving]
  - Oropharyngeal pain [Not Recovered/Not Resolved]
  - Lip dry [Unknown]
  - Ear pain [Not Recovered/Not Resolved]
  - Scab [Recovering/Resolving]
  - Folliculitis [Recovering/Resolving]
  - Back pain [Unknown]
  - Pain [Unknown]
  - Oral pain [Recovering/Resolving]
  - Fatigue [Recovering/Resolving]
  - Hepatic enzyme increased [Unknown]
  - Gastrointestinal motility disorder [Recovering/Resolving]
  - Arthralgia [Recovering/Resolving]
  - Pain in extremity [Recovering/Resolving]
  - Dry skin [Recovering/Resolving]
  - Dry mouth [Unknown]
  - Asthenia [Unknown]
  - Cough [Unknown]
  - Blood pressure increased [Recovering/Resolving]
  - Muscle spasms [Unknown]
  - Taste disorder [Not Recovered/Not Resolved]
  - Haemorrhage [Recovering/Resolving]
